FAERS Safety Report 9489110 (Version 1)
Quarter: 2013Q3

REPORT INFORMATION
  Report Type: Spontaneous
  Country: US (occurrence: US)
  Receive Date: 20130725
  Receipt Date: 20130725
  Transmission Date: 20140515
  Serious: No
  Sender: FDA-Public Use
  Company Number: US-GLAXOSMITHKLINE-A0993145A

PATIENT
  Sex: Female

DRUGS (3)
  1. AVANDIA [Suspect]
     Route: 065
  2. METFORMIN [Suspect]
     Route: 065
  3. UNSPECIFIED MEDICATION [Suspect]
     Route: 065

REACTIONS (1)
  - Drug ineffective [Unknown]
